FAERS Safety Report 22277111 (Version 7)
Quarter: 2024Q1

REPORT INFORMATION
  Report Type: Other
  Country: IN (occurrence: None)
  Receive Date: 20230503
  Receipt Date: 20240305
  Transmission Date: 20240410
  Serious: Yes (Death)
  Sender: FDA-Public Use
  Company Number: IN-ROCHE-3292747

PATIENT
  Age: 63 Year
  Sex: Male

DRUGS (2)
  1. TECENTRIQ [Suspect]
     Active Substance: ATEZOLIZUMAB
     Indication: Metastatic renal cell carcinoma
     Dosage: 14TH CYCLE: INTERVAL 22 DAYS?17TH CYCLE OF TECENTRIQ WAS SCHEDULED BY THE PHYSICIAN ON THE 28TH DAY
     Route: 042
     Dates: start: 20230131
  2. LENVATINIB [Suspect]
     Active Substance: LENVATINIB
     Indication: Metastatic renal cell carcinoma
     Route: 065
     Dates: start: 20230131

REACTIONS (4)
  - Off label use [Unknown]
  - Death [Fatal]
  - Malaise [Unknown]
  - Off label use [Unknown]
